FAERS Safety Report 8120494-8 (Version None)
Quarter: 2012Q1

REPORT INFORMATION
  Report Type: 
  Country: None (occurrence: None)
  Receive Date: 20120203
  Receipt Date: 20120112
  Transmission Date: 20120608
  Serious: No
  Sender: FDA-Public Use
  Company Number: 2135225-2012-00014

PATIENT
  Age: 32 Year
  Sex: Female

DRUGS (1)
  1. ASCLERA [Suspect]
     Indication: SCLEROTHERAPY
     Dates: start: 20120102

REACTIONS (4)
  - INJECTION SITE SWELLING [None]
  - CONTUSION [None]
  - INJECTION SITE PAIN [None]
  - INJECTION SITE ULCER [None]
